FAERS Safety Report 5504268-X (Version None)
Quarter: 2007Q4

REPORT INFORMATION
  Report Type: 
  Country: None (occurrence: None)
  Receive Date: 20071029
  Receipt Date: 20071012
  Transmission Date: 20080405
  Serious: Yes (Other)
  Sender: FDA-Public Use
  Company Number: 106752

PATIENT
  Age: 55 Year
  Sex: Female

DRUGS (1)
  1. DAIVOBET (DAIVOBET /01643401/) [Suspect]
     Indication: PSORIASIS
     Dosage: TOPICAL
     Route: 061

REACTIONS (2)
  - ANGIOEDEMA [None]
  - DRUG ABUSE [None]
